FAERS Safety Report 7551337-9 (Version None)
Quarter: 2011Q2

REPORT INFORMATION
  Report Type: 
  Country: None (occurrence: None)
  Receive Date: 20110616
  Receipt Date: 20110610
  Transmission Date: 20111010
  Serious: Yes (Hospitalization)
  Sender: FDA-Public Use
  Company Number: DE-ABBOTT-11P-062-0731435-00

PATIENT
  Sex: Female

DRUGS (2)
  1. HUMIRA [Suspect]
     Indication: CROHN'S DISEASE
     Route: 058
     Dates: start: 20100505, end: 20100516
  2. HUMIRA [Suspect]
     Dosage: 40 MG EOW
     Route: 058
     Dates: start: 20110303

REACTIONS (1)
  - RENAL FUNCTION TEST ABNORMAL [None]
